FAERS Safety Report 6103569-4 (Version None)
Quarter: 2009Q1

REPORT INFORMATION
  Report Type: 
  Country: None (occurrence: None)
  Receive Date: 20090305
  Receipt Date: 20090223
  Transmission Date: 20090719
  Serious: Yes (Death, Hospitalization)
  Sender: FDA-Public Use
  Company Number: FR-ROCHE-616281

PATIENT
  Sex: Male

DRUGS (3)
  1. CAPECITABINE [Suspect]
     Indication: GASTRIC CANCER
     Route: 048
     Dates: start: 20090120, end: 20090201
  2. OXALIPLATIN [Suspect]
     Indication: GASTRIC CANCER
     Route: 042
     Dates: start: 20090209, end: 20090209
  3. DOCETAXEL [Suspect]
     Indication: GASTRIC CANCER
     Route: 042
     Dates: start: 20090209, end: 20090209

REACTIONS (1)
  - DIARRHOEA [None]
